FAERS Safety Report 6269588-2 (Version None)
Quarter: 2009Q3

REPORT INFORMATION
  Report Type: 
  Country: None (occurrence: None)
  Receive Date: 20090714
  Receipt Date: 20090708
  Transmission Date: 20100115
  Serious: Yes (Hospitalization, Other)
  Sender: FDA-Public Use
  Company Number: WAES 0906USA02455

PATIENT
  Age: 62 Year
  Sex: Female
  Weight: 61.6892 kg

DRUGS (34)
  1. CAP VORINOSTAT UNK [Suspect]
     Indication: NON-HODGKIN'S LYMPHOMA
     Dosage: 500 MG/BID/PO
     Route: 048
     Dates: start: 20090504, end: 20090508
  2. CAP VORINOSTAT UNK [Suspect]
     Indication: NON-HODGKIN'S LYMPHOMA
     Dosage: 500 MG/BID/PO
     Route: 048
     Dates: start: 20090525, end: 20090529
  3. IFOSFAMIDE [Suspect]
     Indication: NON-HODGKIN'S LYMPHOMA
     Dosage: 8450 GM/DAILY/IV; 8.3 GM/DAILY/IV
     Route: 042
     Dates: start: 20090507
  4. IFOSFAMIDE [Suspect]
     Indication: NON-HODGKIN'S LYMPHOMA
     Dosage: 8450 GM/DAILY/IV; 8.3 GM/DAILY/IV
     Route: 042
     Dates: start: 20090528
  5. CARBOPLATIN [Suspect]
     Indication: NON-HODGKIN'S LYMPHOMA
     Dosage: 440 MG/IV; 440MG; IV
     Route: 042
     Dates: start: 20090507
  6. CARBOPLATIN [Suspect]
     Indication: NON-HODGKIN'S LYMPHOMA
     Dosage: 440 MG/IV; 440MG; IV
     Route: 042
     Dates: start: 20090528
  7. ETOPOSIDE [Suspect]
     Indication: NON-HODGKIN'S LYMPHOMA
     Dosage: 169 MG/IV, 166 MG/IV
     Route: 042
     Dates: start: 20090506, end: 20090508
  8. ETOPOSIDE [Suspect]
     Indication: NON-HODGKIN'S LYMPHOMA
     Dosage: 169 MG/IV, 166 MG/IV
     Route: 042
     Dates: start: 20090527, end: 20090529
  9. RITUXIMAB UNK [Suspect]
     Dosage: 630 MG/IV; 622 MG/IV
     Route: 042
     Dates: start: 20090506
  10. RITUXIMAB UNK [Suspect]
     Dosage: 630 MG/IV; 622 MG/IV
     Route: 042
     Dates: start: 20090527
  11. MESNA [Suspect]
     Dosage: 8450 GM/IV; 8300 MG/IV
     Route: 042
     Dates: start: 20090507
  12. MESNA [Suspect]
     Dosage: 8450 GM/IV; 8300 MG/IV
     Route: 042
     Dates: start: 20090527
  13. NEUPOGEN [Suspect]
     Dosage: 600 MICROGM/DAILY/SC, 960 MICROGM/DAILY/SC
     Route: 058
     Dates: start: 20090530, end: 20090608
  14. NEUPOGEN [Suspect]
     Dosage: 600 MICROGM/DAILY/SC, 960 MICROGM/DAILY/SC
     Route: 058
     Dates: start: 20090609, end: 20090614
  15. ALOXI [Concomitant]
  16. BENADRYL [Concomitant]
  17. LOMOTIL [Concomitant]
  18. LYRICA [Concomitant]
  19. PAREGPROC USP [Concomitant]
  20. PHENERGAN HCL [Concomitant]
  21. REGLAN [Concomitant]
  22. TUMS [Concomitant]
  23. ZOFRAN [Concomitant]
  24. ACETAMINOPHEN [Concomitant]
  25. APREPITANT [Concomitant]
  26. ATROPINE SULFATE (+) DIFENOXIN [Concomitant]
  27. CEFAZOLIN [Concomitant]
  28. DEXAMETHASONE [Concomitant]
  29. DOCUSATE SODIUM [Concomitant]
  30. DROPERIDOL [Concomitant]
  31. LORAZEPAM [Concomitant]
  32. OMEPRAZOLE [Concomitant]
  33. PALONOSETRON HYDROCHLORIDE [Concomitant]
  34. POTASSIUM CHLORIDE [Concomitant]

REACTIONS (7)
  - ASTHENIA [None]
  - BLOOD URINE PRESENT [None]
  - DECREASED APPETITE [None]
  - HAEMATOCHEZIA [None]
  - NAUSEA [None]
  - PANCYTOPENIA [None]
  - STOMATITIS [None]
